FAERS Safety Report 6762284-4 (Version None)
Quarter: 2010Q2

REPORT INFORMATION
  Report Type: 
  Country: None (occurrence: None)
  Receive Date: 20100510
  Receipt Date: 20100427
  Transmission Date: 20101027
  Serious: Yes (Hospitalization, Other)
  Sender: FDA-Public Use
  Company Number: AEUSA201000133

PATIENT
  Age: 59 Year
  Sex: Female
  Weight: 64.9 kg

DRUGS (1)
  1. PROLASTIN [Suspect]
     Indication: ALPHA-1 ANTI-TRYPSIN DEFICIENCY
     Dosage: 90 MG/KG;QW;IV
     Route: 042
     Dates: end: 20100201

REACTIONS (5)
  - CHEST DISCOMFORT [None]
  - CHILLS [None]
  - COLD SWEAT [None]
  - PYREXIA [None]
  - THROAT TIGHTNESS [None]
